FAERS Safety Report 4430081-0 (Version None)
Quarter: 2004Q3

REPORT INFORMATION
  Report Type: 
  Country: None (occurrence: None)
  Receive Date: 20040817
  Receipt Date: 20040802
  Transmission Date: 20050211
  Serious: Yes (Death, Hospitalization, Other)
  Sender: FDA-Public Use
  Company Number: 04-246-0768-1

PATIENT
  Sex: Male
  Weight: 71.2147 kg

DRUGS (1)
  1. DAUNORUBICIN LIQUID, UNKNOWN STRENGTH, BEN VENUE [Suspect]
     Indication: MYELODYSPLASTIC SYNDROME
     Dosage: 45 MG/M2 IV DAYS 1-3
     Dates: start: 20040428

REACTIONS (3)
  - FEBRILE NEUTROPENIA [None]
  - MULTI-ORGAN FAILURE [None]
  - SEPSIS [None]
